FAERS Safety Report 4892729-6 (Version None)
Quarter: 2006Q1

REPORT INFORMATION
  Report Type: 
  Country: None (occurrence: None)
  Receive Date: 20060125
  Receipt Date: 20060125
  Transmission Date: 20060701
  Serious: Yes (Hospitalization)
  Sender: FDA-Public Use
  Company Number: None

PATIENT
  Sex: Male

DRUGS (7)
  1. PREDNISONE [Suspect]
     Indication: CROHN'S DISEASE
     Dosage: 5 MG PO DAILY  (THERAPY DATES: UNKNOWN - CHRONIC)
     Route: 048
  2. CHLORASEPTIC SPRAY [Concomitant]
  3. FLUCONAZOLE [Concomitant]
  4. INSULIN [Concomitant]
  5. PIPERACILLIN/ TAZOBACTAM [Concomitant]
  6. LEVOTHYROXINE SODIUM [Concomitant]
  7. KETOROLAC [Concomitant]

REACTIONS (4)
  - ABDOMINAL PAIN [None]
  - GASTRIC ULCER PERFORATION [None]
  - JAUNDICE [None]
  - PERITONITIS [None]
